FAERS Safety Report 8428215-6 (Version None)
Quarter: 2012Q2

REPORT INFORMATION
  Report Type: 
  Country: None (occurrence: None)
  Receive Date: 20120611
  Receipt Date: 20120608
  Transmission Date: 20120825
  Serious: Yes (Other)
  Sender: FDA-Public Use
  Company Number: CHPA2012US011956

PATIENT
  Age: 91 Year
  Sex: Female

DRUGS (2)
  1. DRUG THERAPY NOS [Concomitant]
     Indication: PAIN
  2. VOLTAREN [Suspect]
     Indication: PAIN
     Dosage: 2 G, QID
     Route: 061

REACTIONS (4)
  - BLOOD CALCIUM INCREASED [None]
  - OFF LABEL USE [None]
  - DRUG ADMINISTERED AT INAPPROPRIATE SITE [None]
  - PARATHYROID TUMOUR [None]
